FAERS Safety Report 21156323 (Version 1)
Quarter: 2022Q3

REPORT INFORMATION
  Report Type: Spontaneous
  Country: US (occurrence: US)
  Receive Date: 20220801
  Receipt Date: 20220801
  Transmission Date: 20221026
  Serious: No
  Sender: FDA-Public Use
  Company Number: US-PADAGIS-2022PAD00239

PATIENT

DRUGS (1)
  1. MUPIROCIN [Suspect]
     Active Substance: MUPIROCIN
     Indication: Wound
     Dosage: UNK, BID
     Route: 065
     Dates: start: 202206

REACTIONS (2)
  - Product prescribing issue [Unknown]
  - Product use in unapproved indication [Unknown]
